FAERS Safety Report 7286258-2 (Version None)
Quarter: 2011Q1

REPORT INFORMATION
  Report Type: 
  Country: None (occurrence: None)
  Receive Date: 20110210
  Receipt Date: 20110202
  Transmission Date: 20110831
  Serious: Yes (Hospitalization)
  Sender: FDA-Public Use
  Company Number: PHHO2008DE07827

PATIENT
  Sex: Male
  Weight: 78.4 kg

DRUGS (4)
  1. NO TREATMENT RECEIVED [Suspect]
  2. SANDIMMUNE [Suspect]
     Indication: RENAL TRANSPLANT
     Dosage: 125 MG, BID
     Route: 048
     Dates: start: 20080403
  3. NEORAL [Suspect]
     Indication: RENAL TRANSPLANT
     Dosage: 150 MG, BID
     Route: 048
     Dates: start: 20080403
  4. MYFORTIC [Suspect]
     Indication: RENAL TRANSPLANT
     Dosage: 720 MG, BID
     Route: 048
     Dates: start: 20080403

REACTIONS (2)
  - DRUG INEFFECTIVE [None]
  - KIDNEY TRANSPLANT REJECTION [None]
